FAERS Safety Report 11487866 (Version 1)
Quarter: 2015Q3

REPORT INFORMATION
  Report Type: Spontaneous
  Country: FR (occurrence: FR)
  Receive Date: 20150909
  Receipt Date: 20150909
  Transmission Date: 20151125
  Serious: Yes (Other)
  Sender: FDA-Public Use
  Company Number: FR-PFIZER INC-2015294309

PATIENT
  Age: 86 Year
  Sex: Male

DRUGS (4)
  1. STILNOX [Concomitant]
     Active Substance: ZOLPIDEM TARTRATE
  2. BACTRIM [Suspect]
     Active Substance: SULFAMETHOXAZOLE\TRIMETHOPRIM
     Indication: PROSTATITIS ESCHERICHIA COLI
     Dosage: 3 DF, 1X/DAY
     Route: 048
     Dates: start: 20150730, end: 20150802
  3. TAZOCILLINE [Suspect]
     Active Substance: PIPERACILLIN SODIUM\TAZOBACTAM SODIUM
     Indication: PROSTATITIS ESCHERICHIA COLI
     Dosage: 4 G, 3X/DAY
     Route: 041
     Dates: start: 20150802, end: 20150803
  4. AMIKLIN /00391001/ [Suspect]
     Active Substance: AMIKACIN SULFATE
     Indication: PROSTATITIS ESCHERICHIA COLI
     Dosage: 1600 MG, 1X/DAY
     Route: 041
     Dates: start: 20150802, end: 20150802

REACTIONS (1)
  - Acute generalised exanthematous pustulosis [Recovered/Resolved]

NARRATIVE: CASE EVENT DATE: 20150803
